FAERS Safety Report 22356770 (Version 2)
Quarter: 2023Q2

REPORT INFORMATION
  Report Type: Report from Study
  Country: US (occurrence: US)
  Receive Date: 20230523
  Receipt Date: 20230531
  Transmission Date: 20230722
  Serious: Yes (Hospitalization)
  Sender: FDA-Public Use
  Company Number: US-PFIZER INC-US-GBT-019801

PATIENT
  Age: 25 Year
  Sex: Male

DRUGS (9)
  1. VOXELOTOR [Suspect]
     Active Substance: VOXELOTOR
     Indication: Anaemia
     Dosage: 1500 MG, 1X/DAY
     Dates: start: 20200109, end: 20230126
  2. VOXELOTOR [Suspect]
     Active Substance: VOXELOTOR
     Indication: Sickle cell disease
  3. GLUTAMINE [ALANYL GLUTAMINE] [Concomitant]
     Indication: Sickle cell disease
     Dosage: 10 G, 2X/DAY
     Route: 048
     Dates: start: 20190603
  4. HYDROXYUREA [Concomitant]
     Active Substance: HYDROXYUREA
     Indication: Sickle cell disease
     Dosage: 1500 MG, 1X/DAY
     Route: 048
     Dates: start: 20160926
  5. GABAPENTIN [Concomitant]
     Active Substance: GABAPENTIN
     Indication: Sickle cell disease
     Dosage: 800 MG, 3X/DAY
     Route: 048
     Dates: start: 20211220
  6. Buprenorphine (Butrans) 10 mcg/hr transdermal patch [Concomitant]
     Indication: Sickle cell disease
     Dosage: APPLY 1 PATCH EVERY WEEK
     Route: 062
     Dates: start: 20220629
  7. Ergocalciferol (Vitamin D2) 50,000 Unit capsule [Concomitant]
     Indication: Vitamin D deficiency
     Dosage: 50000 IU, EVERY 14 DAYS
     Route: 048
  8. OXYCODONE [Concomitant]
     Active Substance: OXYCODONE
     Indication: Sickle cell disease
     Dosage: 30 MG, Q4H PRN
     Route: 048
     Dates: start: 20211220
  9. KETOROLAC [Concomitant]
     Active Substance: KETOROLAC TROMETHAMINE
     Dosage: 15 MG, 2X/DAY
     Route: 042

REACTIONS (1)
  - Sickle cell anaemia with crisis [Recovered/Resolved]

NARRATIVE: CASE EVENT DATE: 20230126
